FAERS Safety Report 8591822-4 (Version None)
Quarter: 2012Q3

REPORT INFORMATION
  Report Type: 
  Country: None (occurrence: None)
  Receive Date: 20120814
  Receipt Date: 20120810
  Transmission Date: 20120928
  Serious: Yes (Disabling, Other)
  Sender: FDA-Public Use
  Company Number: PHFR2012GB001737

PATIENT
  Age: 47 Year
  Sex: Female
  Weight: 65.23 kg

DRUGS (9)
  1. OMEPRAZOLE [Concomitant]
     Dosage: 40 MG, UNK
  2. PRIMOLUT N [Concomitant]
     Dosage: 15 MG, UNK
  3. QUININE SULFATE [Concomitant]
  4. DIAZEPAM [Concomitant]
     Dosage: 5 MG, UNK
  5. FOLIC ACID [Concomitant]
     Dosage: 5 MG, UNK
  6. VITAMIN B-12 [Concomitant]
  7. ACETAMINOPHEN AND HYDROCODONE DITARTRATE [Concomitant]
  8. TEGRETOL [Suspect]
     Indication: GRAND MAL CONVULSION
     Dosage: 200 MG, BID
     Route: 048
  9. TRIMETHOPRIM [Suspect]
     Indication: ROSACEA
     Dosage: 2 DF, DAILY
     Route: 048
     Dates: start: 20110408

REACTIONS (2)
  - TREMOR [None]
  - HYPONATRAEMIA [None]
